FAERS Safety Report 9655170 (Version 1)
Quarter: 2013Q4

REPORT INFORMATION
  Report Type: Spontaneous
  Country: US (occurrence: US)
  Receive Date: 20131029
  Receipt Date: 20131029
  Transmission Date: 20140711
  Serious: No
  Sender: FDA-Public Use
  Company Number: US-PURDUE-USA-2012-0086257

PATIENT
  Sex: Male

DRUGS (1)
  1. OXYCONTIN (NDA 22-272) [Suspect]
     Indication: PAIN
     Dosage: 30 MG, UNK

REACTIONS (6)
  - Drug withdrawal syndrome [Unknown]
  - Gastric disorder [Unknown]
  - Muscle spasms [Unknown]
  - Drug effect decreased [Unknown]
  - Abdominal pain upper [Unknown]
  - Malaise [Unknown]
